FAERS Safety Report 16873835 (Version 1)
Quarter: 2019Q4

REPORT INFORMATION
  Report Type: Spontaneous
  Country: US (occurrence: US)
  Receive Date: 20191001
  Receipt Date: 20191001
  Transmission Date: 20200122
  Serious: No
  Sender: FDA-Public Use
  Company Number: US-ABBVIE-18S-163-2582480-00

PATIENT
  Sex: Male

DRUGS (2)
  1. RITONAVIR. [Suspect]
     Active Substance: RITONAVIR
     Indication: HIV INFECTION
     Route: 065
     Dates: start: 201807
  2. NORVIR [Suspect]
     Active Substance: RITONAVIR
     Indication: HIV INFECTION
     Route: 048
     Dates: start: 2008, end: 201807

REACTIONS (3)
  - Tooth loss [Unknown]
  - Tooth loss [Unknown]
  - Fracture [Unknown]

NARRATIVE: CASE EVENT DATE: 2018
